FAERS Safety Report 7548088-3 (Version None)
Quarter: 2011Q2

REPORT INFORMATION
  Report Type: 
  Country: None (occurrence: None)
  Receive Date: 20110615
  Receipt Date: 20110331
  Transmission Date: 20111010
  Serious: Yes (Life-Threatening, Hospitalization)
  Sender: FDA-Public Use
  Company Number: US-BAYER-201027100NA

PATIENT
  Age: 29 Year
  Sex: Female
  Weight: 76.19 kg

DRUGS (5)
  1. MOTRIN [Concomitant]
     Indication: PRODUCT USED FOR UNKNOWN INDICATION
     Route: 048
  2. DICYCLOMINE [Concomitant]
     Indication: PRODUCT USED FOR UNKNOWN INDICATION
     Route: 048
  3. XANAX [Concomitant]
     Indication: PRODUCT USED FOR UNKNOWN INDICATION
     Route: 048
  4. PREVACID [Concomitant]
     Indication: PRODUCT USED FOR UNKNOWN INDICATION
     Route: 048
  5. YAZ [Suspect]
     Indication: CONTRACEPTION
     Dosage: UNK
     Route: 048
     Dates: start: 20070101, end: 20090101

REACTIONS (18)
  - GALLBLADDER NON-FUNCTIONING [None]
  - CHOLECYSTITIS CHRONIC [None]
  - DIARRHOEA [None]
  - MENSTRUATION IRREGULAR [None]
  - INJURY [None]
  - PALPITATIONS [None]
  - CHOLELITHIASIS [None]
  - ABDOMINAL PAIN [None]
  - FUNGAL INFECTION [None]
  - URINARY TRACT DISORDER [None]
  - HELICOBACTER INFECTION [None]
  - VOMITING [None]
  - ARRHYTHMIA [None]
  - CHOLECYSTITIS [None]
  - HYPERSENSITIVITY [None]
  - TACHYCARDIA [None]
  - ORGAN FAILURE [None]
  - ANXIETY [None]
